FAERS Safety Report 6212231-9 (Version None)
Quarter: 2009Q2

REPORT INFORMATION
  Report Type: 
  Country: None (occurrence: None)
  Receive Date: 20090529
  Receipt Date: 20090518
  Transmission Date: 20091009
  Serious: Yes (Death)
  Sender: FDA-Public Use
  Company Number: JPI-P-007226

PATIENT
  Age: 33 Year
  Sex: Male

DRUGS (8)
  1. XYREM [Suspect]
     Indication: INSOMNIA
     Dosage: 6 GM (3 GM, 2 IN 1 D), ORAL, ORAL, 24 GM (8 GM, 3 IN 1 D), ORAL; 16 GM (8 GM, 2 IN 1 D), ORAL;
     Route: 048
     Dates: start: 20041202, end: 20060101
  2. XYREM [Suspect]
     Indication: NARCOLEPSY
     Dosage: 6 GM (3 GM, 2 IN 1 D), ORAL, ORAL, 24 GM (8 GM, 3 IN 1 D), ORAL; 16 GM (8 GM, 2 IN 1 D), ORAL;
     Route: 048
     Dates: start: 20041202, end: 20060101
  3. XYREM [Suspect]
     Indication: INSOMNIA
     Dosage: 6 GM (3 GM, 2 IN 1 D), ORAL, ORAL, 24 GM (8 GM, 3 IN 1 D), ORAL; 16 GM (8 GM, 2 IN 1 D), ORAL;
     Route: 048
     Dates: start: 20070501, end: 20070805
  4. XYREM [Suspect]
     Indication: NARCOLEPSY
     Dosage: 6 GM (3 GM, 2 IN 1 D), ORAL, ORAL, 24 GM (8 GM, 3 IN 1 D), ORAL; 16 GM (8 GM, 2 IN 1 D), ORAL;
     Route: 048
     Dates: start: 20070501, end: 20070805
  5. XYREM [Suspect]
     Indication: INSOMNIA
     Dosage: 6 GM (3 GM, 2 IN 1 D), ORAL, ORAL, 24 GM (8 GM, 3 IN 1 D), ORAL; 16 GM (8 GM, 2 IN 1 D), ORAL;
     Route: 048
     Dates: start: 20070501
  6. XYREM [Suspect]
     Indication: NARCOLEPSY
     Dosage: 6 GM (3 GM, 2 IN 1 D), ORAL, ORAL, 24 GM (8 GM, 3 IN 1 D), ORAL; 16 GM (8 GM, 2 IN 1 D), ORAL;
     Route: 048
     Dates: start: 20070501
  7. XYREM [Suspect]
     Indication: INSOMNIA
     Dosage: 6 GM (3 GM, 2 IN 1 D), ORAL, ORAL, 24 GM (8 GM, 3 IN 1 D), ORAL; 16 GM (8 GM, 2 IN 1 D), ORAL;
     Route: 048
     Dates: start: 20090408
  8. XYREM [Suspect]
     Indication: NARCOLEPSY
     Dosage: 6 GM (3 GM, 2 IN 1 D), ORAL, ORAL, 24 GM (8 GM, 3 IN 1 D), ORAL; 16 GM (8 GM, 2 IN 1 D), ORAL;
     Route: 048
     Dates: start: 20090408

REACTIONS (1)
  - DEATH [None]
